FAERS Safety Report 5079301-2 (Version None)
Quarter: 2006Q3

REPORT INFORMATION
  Report Type: 
  Country: None (occurrence: None)
  Receive Date: 20060808
  Receipt Date: 20060519
  Transmission Date: 20061208
  Serious: No
  Sender: FDA-Public Use
  Company Number: 2006S1004744

PATIENT
  Age: 56 Year
  Sex: Female

DRUGS (1)
  1. FENTANYL TRANSDERMAL SYSTEM [Suspect]
     Indication: BONE NEOPLASM MALIGNANT
     Dosage: 50 UG/HR; X1; TRANS
     Dates: start: 20060513, end: 20060516

REACTIONS (4)
  - CONSTIPATION [None]
  - NAUSEA [None]
  - SOMNOLENCE [None]
  - VOMITING [None]
